FAERS Safety Report 7674382-1 (Version None)
Quarter: 2011Q3

REPORT INFORMATION
  Report Type: 
  Country: None (occurrence: None)
  Receive Date: 20110810
  Receipt Date: 20110726
  Transmission Date: 20111222
  Serious: Yes (Other)
  Sender: FDA-Public Use
  Company Number: DE-RANBAXY-2011R1-46654

PATIENT
  Age: 77 Year
  Sex: Female

DRUGS (1)
  1. AMOXICILLIN [Suspect]
     Indication: ABSCESS
     Dosage: 1000 MG, BID
     Route: 065

REACTIONS (2)
  - CARDIOVASCULAR INSUFFICIENCY [None]
  - VISUAL IMPAIRMENT [None]
